FAERS Safety Report 17631202 (Version 1)
Quarter: 2020Q2

REPORT INFORMATION
  Report Type: Report from Study
  Country: GB (occurrence: GB)
  Receive Date: 20200406
  Receipt Date: 20200406
  Transmission Date: 20200713
  Serious: Yes (Other)
  Sender: FDA-Public Use
  Company Number: GB-JNJFOC-20200339372

PATIENT
  Sex: Male

DRUGS (5)
  1. LEFLUNOMIDE. [Concomitant]
     Active Substance: LEFLUNOMIDE
  2. ETORICOXIB. [Concomitant]
     Active Substance: ETORICOXIB
  3. SULFASALAZINE. [Concomitant]
     Active Substance: SULFASALAZINE
  4. GABAPENTIN. [Concomitant]
     Active Substance: GABAPENTIN
  5. STELARA [Suspect]
     Active Substance: USTEKINUMAB
     Indication: PSORIATIC ARTHROPATHY
     Route: 058
     Dates: start: 20161214

REACTIONS (1)
  - Lower respiratory tract infection [Unknown]
